FAERS Safety Report 5749691-3 (Version None)
Quarter: 2008Q2

REPORT INFORMATION
  Report Type: 
  Country: None (occurrence: None)
  Receive Date: 20080521
  Receipt Date: 20080521
  Transmission Date: 20081010
  Serious: Yes (Hospitalization, Disabling)
  Sender: FDA-Public Use
  Company Number: None

PATIENT
  Age: 29 Year
  Sex: Male
  Weight: 70 kg

DRUGS (1)
  1. DOXORUBICIN HCL [Suspect]
     Indication: CARDIOTOXICITY
     Dosage: 25 MG/M2 Q 2W PR
     Dates: start: 20060401, end: 20060430

REACTIONS (1)
  - CARDIOMYOPATHY [None]
